FAERS Safety Report 6825009-X (Version None)
Quarter: 2010Q3

REPORT INFORMATION
  Report Type: 
  Country: None (occurrence: None)
  Receive Date: 20100708
  Receipt Date: 20061207
  Transmission Date: 20110219
  Serious: No
  Sender: FDA-Public Use
  Company Number: US-PFIZER INC-2006153702

PATIENT
  Age: 64 Year
  Sex: Female
  Weight: 78.47 kg

DRUGS (3)
  1. CHANTIX [Suspect]
     Indication: EX-TOBACCO USER
     Route: 048
     Dates: start: 20060101
  2. LIPITOR [Concomitant]
     Indication: EX-TOBACCO USER
     Route: 048
  3. ANTIHYPERTENSIVES [Concomitant]
     Route: 048

REACTIONS (3)
  - ABDOMINAL PAIN UPPER [None]
  - COLD SWEAT [None]
  - DYSPEPSIA [None]
